FAERS Safety Report 6298913-1 (Version None)
Quarter: 2009Q3

REPORT INFORMATION
  Report Type: 
  Country: None (occurrence: None)
  Receive Date: 20090804
  Receipt Date: 20090723
  Transmission Date: 20100115
  Serious: Yes (Hospitalization)
  Sender: FDA-Public Use
  Company Number: 001317

PATIENT
  Sex: Male

DRUGS (3)
  1. NEUPRO [Suspect]
     Dosage: 2 MG QD TRANSDERMAL 2 MG BID TRANSDERMAL 6 MG 4 MG IN THE EVENING AND IN ADDITION 2 MG IN THE MORNIN
     Route: 062
     Dates: start: 20090101, end: 20090101
  2. NEUPRO [Suspect]
     Dosage: 2 MG QD TRANSDERMAL 2 MG BID TRANSDERMAL 6 MG 4 MG IN THE EVENING AND IN ADDITION 2 MG IN THE MORNIN
     Route: 062
     Dates: start: 20090501, end: 20090101
  3. NEUPRO [Suspect]
     Dosage: 2 MG QD TRANSDERMAL 2 MG BID TRANSDERMAL 6 MG 4 MG IN THE EVENING AND IN ADDITION 2 MG IN THE MORNIN
     Route: 062
     Dates: start: 20090101

REACTIONS (6)
  - AKINESIA [None]
  - CONTUSION [None]
  - DRUG INEFFECTIVE [None]
  - FALL [None]
  - PRODUCT QUALITY ISSUE [None]
  - SALIVARY HYPERSECRETION [None]
